FAERS Safety Report 7154043-8 (Version None)
Quarter: 2010Q4

REPORT INFORMATION
  Report Type: 
  Country: None (occurrence: None)
  Receive Date: 20101213
  Receipt Date: 20101201
  Transmission Date: 20110411
  Serious: No
  Sender: FDA-Public Use
  Company Number: MX-ELI_LILLY_AND_COMPANY-MX201011000508

PATIENT
  Age: 78 Year
  Sex: Female
  Weight: 53 kg

DRUGS (8)
  1. FORTEO [Suspect]
     Indication: OSTEOPOROSIS
     Dosage: 20 UG, DAILY (1/D)
     Route: 065
  2. LEVODOPA [Concomitant]
     Indication: PAIN
     Dosage: UNK, UNKNOWN
     Route: 065
  3. MIRTAZAPINE [Concomitant]
     Dosage: UNK, UNKNOWN
     Route: 065
  4. MELOXICAM [Concomitant]
     Dosage: UNK, UNKNOWN
     Route: 065
     Dates: start: 20101024
  5. CLARITROMYCINE [Concomitant]
     Dosage: UNK, UNKNOWN
     Route: 065
     Dates: start: 20101024
  6. NITROFURANTOIN [Concomitant]
     Dosage: UNK, UNKNOWN
     Route: 065
     Dates: start: 20101024
  7. SIMVASTATIN [Concomitant]
     Indication: BLOOD CHOLESTEROL
     Dosage: UNK, UNKNOWN
     Route: 065
  8. ACETYLSALICYLIC ACID [Concomitant]
     Indication: CARDIAC DISORDER
     Dosage: UNK, UNKNOWN
     Route: 065

REACTIONS (1)
  - NO ADVERSE EVENT [None]
